FAERS Safety Report 9423373 (Version 1)
Quarter: 2013Q3

REPORT INFORMATION
  Report Type: Report from Study
  Country: ZA (occurrence: ZA)
  Receive Date: 20130726
  Receipt Date: 20130726
  Transmission Date: 20140515
  Serious: Yes (Other)
  Sender: FDA-Public Use
  Company Number: ZA-ABBOTT-13P-143-1120743-00

PATIENT
  Age: 34 Year
  Sex: Female

DRUGS (6)
  1. ALUVIA [Suspect]
     Indication: HIV INFECTION
     Dosage: 400/100 MG PO BID
     Route: 048
     Dates: start: 20130402
  2. EMTRICITABINE W/TENOFOVIR DISOPROXIL FUMARATE [Concomitant]
     Indication: HIV INFECTION
     Dosage: 200/300 MG PO QD
     Route: 048
     Dates: start: 20130402
  3. CANDIZOLE [Concomitant]
     Indication: VULVOVAGINAL CANDIDIASIS
     Dates: start: 20130527
  4. PREGAMAL [Concomitant]
     Indication: PRODUCT USED FOR UNKNOWN INDICATION
     Route: 048
     Dates: start: 20130508
  5. VIT C [Concomitant]
     Indication: PRODUCT USED FOR UNKNOWN INDICATION
     Route: 048
     Dates: start: 20130516
  6. FOLIC ACID [Concomitant]
     Indication: PRODUCT USED FOR UNKNOWN INDICATION
     Route: 048
     Dates: start: 20130516

REACTIONS (1)
  - Foetal death [Unknown]
